FAERS Safety Report 21720327 (Version 1)
Quarter: 2022Q4

REPORT INFORMATION
  Report Type: Spontaneous
  Country: PT (occurrence: PT)
  Receive Date: 20221213
  Receipt Date: 20221213
  Transmission Date: 20230113
  Serious: Yes (Other)
  Sender: FDA-Public Use
  Company Number: PT-BBM-PT-BBM-202209115

PATIENT
  Age: 27 Year
  Sex: Female

DRUGS (6)
  1. FENTANYL [Suspect]
     Active Substance: FENTANYL
     Indication: Epidural anaesthesia
     Dosage: 5 MICROGRAM
     Route: 065
  2. FENTANYL [Suspect]
     Active Substance: FENTANYL
     Dosage: 2.5 MICROGRAM
     Route: 065
  3. LIDOCAINE [Suspect]
     Active Substance: LIDOCAINE
     Indication: Epidural anaesthesia
     Dosage: 15 MILLILITER BOLUS
     Route: 065
  4. ROPIVACAINE [Suspect]
     Active Substance: ROPIVACAINE
     Indication: Epidural anaesthesia
     Dosage: 10 MILLILITER (INTERMITTENT EPIDURAL BOLUS; AS NEEDED)
     Route: 065
  5. ROPIVACAINE [Suspect]
     Active Substance: ROPIVACAINE
     Indication: Spinal anaesthesia
     Dosage: 2 MILLILITER
     Route: 065
  6. ROPIVACAINE [Suspect]
     Active Substance: ROPIVACAINE
     Indication: Epidural analgesia
     Dosage: 8 MILLILITER (TWO OTHER ANALGESIC BOLUS; ADMINISTERED DURING THE NIGHT, AT 1:00 AM AND AT 5:00 AM)
     Route: 065

REACTIONS (4)
  - Hypotension [Recovered/Resolved]
  - Horner^s syndrome [Recovering/Resolving]
  - Heart rate decreased [Unknown]
  - Maternal exposure during delivery [Recovering/Resolving]
